FAERS Safety Report 19981161 (Version 1)
Quarter: 2021Q4

REPORT INFORMATION
  Report Type: Spontaneous
  Country: US (occurrence: US)
  Receive Date: 20211021
  Receipt Date: 20211021
  Transmission Date: 20220303
  Serious: No
  Sender: FDA-Public Use
  Company Number: US-PFIZER INC-2021541653

PATIENT
  Age: 25 Year
  Sex: Male

DRUGS (1)
  1. IBRANCE [Suspect]
     Active Substance: PALBOCICLIB
     Indication: Sarcoma
     Dosage: 125 MG

REACTIONS (3)
  - Haematotoxicity [Unknown]
  - Off label use [Unknown]
  - Drug effective for unapproved indication [Unknown]
